FAERS Safety Report 4528939-7 (Version None)
Quarter: 2004Q4

REPORT INFORMATION
  Report Type: 
  Country: None (occurrence: None)
  Receive Date: 20041214
  Receipt Date: 20041118
  Transmission Date: 20050328
  Serious: Yes (Death)
  Sender: FDA-Public Use
  Company Number: WAES 0411GBR00185

PATIENT
  Age: 74 Year
  Sex: Male

DRUGS (3)
  1. TAB EZETIMIBE (+) SIMVASTATIN 10/40 MG [Suspect]
     Indication: AORTIC STENOSIS
     Dosage: 10/40 MG/DAILY/PO
     Route: 048
     Dates: start: 20040202, end: 20040712
  2. ASPIRIN [Concomitant]
  3. LEVOTHYROXINE SODIUM [Concomitant]

REACTIONS (1)
  - MYOCARDIAL INFARCTION [None]
